FAERS Safety Report 5385710-4 (Version None)
Quarter: 2007Q3

REPORT INFORMATION
  Report Type: 
  Country: None (occurrence: None)
  Receive Date: 20070712
  Receipt Date: 20070702
  Transmission Date: 20080115
  Serious: Yes (Death, Other)
  Sender: FDA-Public Use
  Company Number: US-PFIZER INC-2007004709

PATIENT
  Sex: Male
  Weight: 54.4 kg

DRUGS (1)
  1. BEXTRA [Suspect]
     Indication: PAIN IN EXTREMITY
     Route: 048
     Dates: start: 20040708, end: 20041225

REACTIONS (1)
  - MYOCARDIAL INFARCTION [None]
